FAERS Safety Report 17896932 (Version 1)
Quarter: 2020Q2

REPORT INFORMATION
  Report Type: Spontaneous
  Country: US (occurrence: US)
  Receive Date: 20200615
  Receipt Date: 20200615
  Transmission Date: 20200714
  Serious: Yes (Other)
  Sender: FDA-Public Use
  Company Number: US-BAUSCH-BL-2020-016715

PATIENT
  Age: 33 Year
  Sex: Male

DRUGS (1)
  1. NITROPRUSSIDE [Suspect]
     Active Substance: NITROPRUSSIDE
     Indication: PRODUCT USED FOR UNKNOWN INDICATION
     Route: 065

REACTIONS (3)
  - Blood test abnormal [Recovered/Resolved]
  - Congestive hepatopathy [Recovered/Resolved]
  - Cardiorenal syndrome [Recovered/Resolved]
